FAERS Safety Report 6669582-3 (Version None)
Quarter: 2010Q2

REPORT INFORMATION
  Report Type: 
  Country: None (occurrence: None)
  Receive Date: 20100406
  Receipt Date: 20100326
  Transmission Date: 20101027
  Serious: Yes (Other)
  Sender: FDA-Public Use
  Company Number: US-PFIZER INC-2010039204

PATIENT
  Age: 85 Year
  Sex: Female

DRUGS (11)
  1. NORVASC [Suspect]
  2. DOXYCYCLINE CALCIUM [Suspect]
  3. ACETYLSALICYLIC ACID [Suspect]
  4. VALSARTAN [Suspect]
  5. HYDROCHLOROTHIAZIDE [Suspect]
  6. HYDRALAZINE [Suspect]
  7. IMDUR [Suspect]
  8. LOTENSIN [Suspect]
  9. NEXIUM [Suspect]
  10. TENORMIN [Suspect]
  11. TOPROL-XL [Suspect]

REACTIONS (1)
  - HYPERSENSITIVITY [None]
